FAERS Safety Report 24036195 (Version 1)
Quarter: 2024Q3

REPORT INFORMATION
  Report Type: Spontaneous
  Country: US (occurrence: US)
  Receive Date: 20240701
  Receipt Date: 20240701
  Transmission Date: 20241016
  Serious: Yes (Other)
  Sender: DR REDDYS
  Company Number: US-DRL-USA-LIT/USA/24/0009293

PATIENT
  Age: 70 Year
  Sex: Male

DRUGS (1)
  1. TAMOXIFEN [Suspect]
     Active Substance: TAMOXIFEN
     Indication: Breast cancer male

REACTIONS (2)
  - Drug ineffective [Unknown]
  - Malignant neoplasm progression [Unknown]
